FAERS Safety Report 10086039 (Version 2)
Quarter: 2014Q2

REPORT INFORMATION
  Report Type: Spontaneous
  Country: DE (occurrence: DE)
  Receive Date: 20140418
  Receipt Date: 20140612
  Transmission Date: 20141212
  Serious: Yes (Other)
  Sender: FDA-Public Use
  Company Number: PHHY2014DE046837

PATIENT
  Sex: Male

DRUGS (1)
  1. EXFORGE [Suspect]
     Dosage: 1 DF, (160 MG VALS AND 10 MG AMLO)
     Dates: start: 2006

REACTIONS (3)
  - Goitre [Unknown]
  - Discomfort [Not Recovered/Not Resolved]
  - Influenza [Unknown]
